FAERS Safety Report 7656176-6 (Version None)
Quarter: 2011Q3

REPORT INFORMATION
  Report Type: 
  Country: None (occurrence: None)
  Receive Date: 20110804
  Receipt Date: 20110728
  Transmission Date: 20111222
  Serious: Yes (Disabling)
  Sender: FDA-Public Use
  Company Number: FR-PFIZER INC-2011171695

PATIENT
  Age: 52 Year
  Sex: Male

DRUGS (3)
  1. CRESTOR [Suspect]
     Indication: HYPERCHOLESTEROLAEMIA
     Dosage: 5 MG DAILY
     Route: 048
     Dates: start: 20101122, end: 20110124
  2. CRESTOR [Suspect]
     Dosage: 5 MG DAILY
     Route: 048
     Dates: start: 20110208, end: 20110328
  3. VENLAFAXINE HCL [Suspect]
     Indication: STRESS
     Dosage: UNK
     Route: 048
     Dates: start: 20101122, end: 20110206

REACTIONS (5)
  - HEADACHE [None]
  - NAUSEA [None]
  - FATIGUE [None]
  - MYALGIA [None]
  - EXERCISE LACK OF [None]
